FAERS Safety Report 6915414-5 (Version None)
Quarter: 2010Q3

REPORT INFORMATION
  Report Type: 
  Country: None (occurrence: None)
  Receive Date: 20100809
  Receipt Date: 20100519
  Transmission Date: 20110219
  Serious: No
  Sender: FDA-Public Use
  Company Number: US-ABBOTT-10P-163-0641955-00

PATIENT
  Sex: Male
  Weight: 83.99 kg

DRUGS (8)
  1. DEPAKOTE ER [Suspect]
     Indication: DEPRESSION
     Dates: start: 20100301
  2. ZOLOFT [Concomitant]
     Indication: AGORAPHOBIA
  3. ZOLOFT [Concomitant]
     Indication: PANIC ATTACK
  4. ZOLOFT [Concomitant]
     Indication: DEPRESSION
  5. AMLODIPINE [Concomitant]
     Indication: HYPERTENSION
  6. LISINOPRIL [Concomitant]
     Indication: HYPERTENSION
  7. XANAX [Concomitant]
     Indication: PANIC ATTACK
  8. METOPROLOL TARTRATE AND HYDROCHLOROTHIAZIDE [Concomitant]
     Indication: HYPERTENSION

REACTIONS (1)
  - ABDOMINAL PAIN [None]
